FAERS Safety Report 9385667 (Version 3)
Quarter: 2013Q3

REPORT INFORMATION
  Report Type: Spontaneous
  Country: JP (occurrence: JP)
  Receive Date: 20130705
  Receipt Date: 20130731
  Transmission Date: 20140515
  Serious: Yes (Other)
  Sender: FDA-Public Use
  Company Number: JP-GLAXOSMITHKLINE-B0905052A

PATIENT
  Age: 9 Decade
  Sex: Male

DRUGS (4)
  1. REQUIP [Suspect]
     Indication: PARKINSON^S DISEASE
     Dosage: 2MG PER DAY
     Route: 048
     Dates: start: 20121015, end: 20130607
  2. MADOPAR [Concomitant]
     Route: 048
  3. BAYASPIRIN [Concomitant]
     Route: 048
  4. OLMETEC [Concomitant]
     Route: 048

REACTIONS (2)
  - Depressed level of consciousness [Recovered/Resolved]
  - Feeling abnormal [Unknown]
